FAERS Safety Report 26170868 (Version 1)
Quarter: 2025Q4

REPORT INFORMATION
  Report Type: Spontaneous
  Country: JP (occurrence: JP)
  Receive Date: 20251217
  Receipt Date: 20251217
  Transmission Date: 20260118
  Serious: Yes (Disabling, Other)
  Sender: PFIZER
  Company Number: JP-PFIZER INC-PV202500122270

PATIENT
  Sex: Male

DRUGS (1)
  1. LITFULO [Suspect]
     Active Substance: RITLECITINIB TOSYLATE
     Indication: Alopecia areata
     Dosage: 50 MG
     Route: 048
     Dates: start: 20251001, end: 20251014

REACTIONS (7)
  - Drug eruption [Unknown]
  - Enanthema [Recovering/Resolving]
  - Conjunctival hyperaemia [Recovering/Resolving]
  - Renal impairment [Unknown]
  - Pyrexia [Unknown]
  - Malaise [Unknown]
  - Hepatic function abnormal [Unknown]

NARRATIVE: CASE EVENT DATE: 20251014
